FAERS Safety Report 24226136 (Version 1)
Quarter: 2024Q3

REPORT INFORMATION
  Report Type: Spontaneous
  Country: ZA (occurrence: None)
  Receive Date: 20240820
  Receipt Date: 20240820
  Transmission Date: 20241017
  Serious: Yes (Life-Threatening)
  Sender: ASTRAZENECA
  Company Number: 2024A187857

PATIENT
  Age: 78 Year
  Sex: Female

DRUGS (10)
  1. DAPAGLIFLOZIN PROPANEDIOL [Suspect]
     Active Substance: DAPAGLIFLOZIN PROPANEDIOL
     Indication: Type 2 diabetes mellitus
     Route: 048
  2. PREXUM 10 MG [Concomitant]
     Indication: Hypertension
     Route: 048
  3. BISOPROLOL FUMARATE [Concomitant]
     Active Substance: BISOPROLOL FUMARATE
     Indication: Cardiac failure acute
     Route: 048
  4. ADCO-ZOLPIDEM HEMITARTRATE 10 MG [Concomitant]
     Indication: African trypanosomiasis
     Route: 048
  5. SPIRACTIN 25 MG [Concomitant]
     Indication: Hypertension
     Route: 048
  6. THIAMINE 100 MG [Concomitant]
     Route: 048
  7. CLOTRIMAZOLE DIS-CHEM 1 % [Concomitant]
     Route: 061
  8. FLUCONAZOLE 150 STRIDES 150 MG [Concomitant]
     Route: 048
  9. LIPOGEN 40 MG [Concomitant]
     Indication: Blood cholesterol
     Route: 048
  10. ACETAMINOPHEN\TRAMADOL HYDROCHLORIDE [Concomitant]
     Active Substance: ACETAMINOPHEN\TRAMADOL HYDROCHLORIDE
     Indication: Pain
     Route: 048

REACTIONS (1)
  - Cardiac failure [Unknown]
